FAERS Safety Report 8460172-9 (Version None)
Quarter: 2012Q2

REPORT INFORMATION
  Report Type: 
  Country: None (occurrence: None)
  Receive Date: 20120622
  Receipt Date: 20120620
  Transmission Date: 20120825
  Serious: Yes (Life-Threatening, Other)
  Sender: FDA-Public Use
  Company Number: AU-B.I. PHARMACEUTICALS,INC./RIDGEFIELD-2012-AU-00993AU

PATIENT
  Sex: Female
  Weight: 62 kg

DRUGS (5)
  1. KARVEA [Concomitant]
  2. PRADAXA [Suspect]
     Indication: ATRIAL FIBRILLATION
     Dosage: 220 MG
  3. CRESTOR [Concomitant]
  4. LASIX [Concomitant]
  5. PROTOS [Concomitant]

REACTIONS (4)
  - RENAL CELL CARCINOMA [None]
  - OVARIAN MASS [None]
  - JOINT SWELLING [None]
  - OEDEMA PERIPHERAL [None]
